FAERS Safety Report 4331926-5 (Version None)
Quarter: 2004Q2

REPORT INFORMATION
  Report Type: 
  Country: None (occurrence: None)
  Receive Date: 20040405
  Receipt Date: 20030506
  Transmission Date: 20050107
  Serious: No
  Sender: FDA-Public Use
  Company Number: US-GLAXOSMITHKLINE-A0407347A

PATIENT
  Sex: Female

DRUGS (2)
  1. SEREVENT [Suspect]
     Indication: EMPHYSEMA
     Route: 055
  2. COMBIVENT [Concomitant]

REACTIONS (2)
  - DYSPNOEA [None]
  - PANIC REACTION [None]
